FAERS Safety Report 15797437 (Version 1)
Quarter: 2019Q1

REPORT INFORMATION
  Report Type: Spontaneous
  Country: US (occurrence: US)
  Receive Date: 20190108
  Receipt Date: 20190108
  Transmission Date: 20190417
  Serious: Yes (Hospitalization, Other)
  Sender: FDA-Public Use
  Company Number: US-SHILPA MEDICARE LIMITED-SML-US-2018-00138

PATIENT
  Age: 57 Year
  Sex: Female

DRUGS (1)
  1. CAPECITABINE, UNKNOWN [Suspect]
     Active Substance: CAPECITABINE
     Indication: INVASIVE DUCTAL BREAST CARCINOMA
     Route: 065

REACTIONS (21)
  - Enterocolitis haemorrhagic [Unknown]
  - Rash [Recovering/Resolving]
  - Condition aggravated [Recovered/Resolved]
  - Confusional state [Recovered/Resolved]
  - Vomiting [Unknown]
  - Diarrhoea haemorrhagic [Recovering/Resolving]
  - Mental status changes [Recovering/Resolving]
  - Nausea [Recovered/Resolved]
  - Stomatitis [Recovered/Resolved]
  - Lethargy [Recovered/Resolved]
  - Hemiparesis [Recovered/Resolved]
  - Pancytopenia [Recovered/Resolved]
  - Ventricular tachycardia [Unknown]
  - Lip swelling [Recovering/Resolving]
  - Pyrexia [Unknown]
  - Toxicity to various agents [Unknown]
  - Face oedema [Recovering/Resolving]
  - Diarrhoea [Recovered/Resolved]
  - Febrile neutropenia [Unknown]
  - Dihydropyrimidine dehydrogenase deficiency [Unknown]
  - Osmotic demyelination syndrome [Unknown]
